FAERS Safety Report 8920886 (Version 2)
Quarter: 2012Q4

REPORT INFORMATION
  Report Type: 
  Country: US (occurrence: US)
  Receive Date: 20121121
  Receipt Date: 20121228
  Transmission Date: 20130627
  Serious: Yes (Hospitalization)
  Sender: FDA-Public Use
  Company Number: US-GLAXOSMITHKLINE-A0978208A

PATIENT
  Age: 69 Year
  Sex: Female

DRUGS (1)
  1. FLOLAN [Suspect]
     Indication: PRODUCT USED FOR UNKNOWN INDICATION
     Dosage: 21NGKM Continuous
     Route: 042
     Dates: start: 20070405

REACTIONS (10)
  - Loss of consciousness [Unknown]
  - Malaise [Unknown]
  - Headache [Recovering/Resolving]
  - Flushing [Unknown]
  - Hot flush [Unknown]
  - Dyspnoea [Unknown]
  - Hyperhidrosis [Unknown]
  - Palpitations [Unknown]
  - Device infusion issue [Recovered/Resolved]
  - Hypotension [Unknown]
